FAERS Safety Report 4392145-X (Version None)
Quarter: 2004Q3

REPORT INFORMATION
  Report Type: 
  Country: None (occurrence: None)
  Receive Date: 20040702
  Receipt Date: 20040329
  Transmission Date: 20050211
  Serious: Yes (Other)
  Sender: FDA-Public Use
  Company Number: 2004UW06176

PATIENT
  Age: 70 Year
  Sex: Female
  Weight: 68.0396 kg

DRUGS (8)
  1. CRESTOR [Suspect]
     Indication: BLOOD CHOLESTEROL INCREASED
     Dosage: 10 MG QD; PO
     Route: 048
  2. TENORMIN [Concomitant]
  3. LANOXIN [Concomitant]
  4. COZAAR [Concomitant]
  5. SYNTHROID [Concomitant]
  6. GLUCOTROL [Concomitant]
  7. ACTOS [Concomitant]
  8. ECOTRIN [Concomitant]

REACTIONS (3)
  - BLOOD BLISTER [None]
  - PAIN IN EXTREMITY [None]
  - VASODILATATION [None]
